FAERS Safety Report 6064000-0 (Version None)
Quarter: 2009Q1

REPORT INFORMATION
  Report Type: 
  Country: None (occurrence: None)
  Receive Date: 20090203
  Receipt Date: 20090203
  Transmission Date: 20090719
  Serious: Yes (Hospitalization)
  Sender: FDA-Public Use
  Company Number: None

PATIENT
  Age: 73 Year
  Sex: Male

DRUGS (1)
  1. SIMVASTATIN [Suspect]
     Indication: LIPIDS INCREASED
     Dosage: 40 MG EVERY DAY PO
     Route: 048
     Dates: start: 20080717, end: 20081227

REACTIONS (1)
  - RHABDOMYOLYSIS [None]
